FAERS Safety Report 9198065 (Version 4)
Quarter: 2014Q1

REPORT INFORMATION
  Report Type: Report from Study
  Country: JP (occurrence: JP)
  Receive Date: 20130328
  Receipt Date: 20140314
  Transmission Date: 20141002
  Serious: Yes (Other)
  Sender: FDA-Public Use
  Company Number: JP-OTSUKA-JP-2013-10685

PATIENT
  Age: 55 Year
  Sex: Male
  Weight: 50.8 kg

DRUGS (6)
  1. SAMSCA [Suspect]
     Indication: FLUID RETENTION
     Dosage: 15 MG MILLIGRAM(S), QAM
     Route: 048
     Dates: start: 20130111, end: 20130115
  2. SAMSCA [Suspect]
     Dosage: 7.5 MG MILLIGRAM(S), QAM
     Route: 048
     Dates: start: 20130116, end: 20130118
  3. LASIX [Suspect]
     Indication: CARDIAC FAILURE
     Dosage: 40 MG MILLIGRAM(S), DAILY DOSE
     Route: 048
  4. ALDACTONE A [Concomitant]
     Indication: CARDIAC FAILURE
     Dosage: 25 MG MILLIGRAM(S), DAILY DOSE
     Route: 048
  5. SEISHOKU [Concomitant]
     Indication: CARDIAC FAILURE
     Dosage: 500 ML MILLILITRE(S), DAILY DOSE
     Route: 041
  6. SEISHOKU [Concomitant]
     Indication: RENAL FAILURE CHRONIC

REACTIONS (5)
  - Gout [Unknown]
  - Anaemia [Unknown]
  - Renal failure chronic [Recovering/Resolving]
  - Pyrexia [Unknown]
  - Hypernatraemia [Recovered/Resolved]
